FAERS Safety Report 14154828 (Version 1)
Quarter: 2017Q4

REPORT INFORMATION
  Report Type: Spontaneous
  Country: None (occurrence: DE)
  Receive Date: 20171102
  Receipt Date: 20171102
  Transmission Date: 20180321
  Serious: Yes (Other)
  Sender: FDA-Public Use
  Company Number: DE-GALEN LIMITED-AE-2017-0644

PATIENT
  Age: 40 Year
  Sex: Female

DRUGS (1)
  1. ADASUVE [Suspect]
     Active Substance: LOXAPINE
     Indication: AGITATION

REACTIONS (4)
  - Off label use [Recovered/Resolved]
  - Contraindicated product administered [None]
  - Contraindicated drug prescribed [None]
  - Bronchospasm [Recovered/Resolved]
